FAERS Safety Report 6203976-5 (Version None)
Quarter: 2009Q2

REPORT INFORMATION
  Report Type: 
  Country: None (occurrence: None)
  Receive Date: 20090527
  Receipt Date: 20090519
  Transmission Date: 20091009
  Serious: Yes (Life-Threatening)
  Sender: FDA-Public Use
  Company Number: B0574824A

PATIENT
  Age: 26 Year
  Sex: Female
  Weight: 60 kg

DRUGS (4)
  1. ZYBAN [Suspect]
     Route: 048
     Dates: start: 20090306, end: 20090430
  2. CHAMPIX [Suspect]
     Route: 048
     Dates: start: 20090430, end: 20090507
  3. YASMIN [Concomitant]
     Indication: CONTRACEPTION
     Route: 048
     Dates: start: 20080704
  4. TERBUTALINE SULFATE [Concomitant]
     Indication: ASTHMA
     Route: 055
     Dates: start: 20070301

REACTIONS (3)
  - CELLULITIS [None]
  - FEELING HOT [None]
  - SWELLING FACE [None]
